FAERS Safety Report 6225338-7 (Version None)
Quarter: 2009Q2

REPORT INFORMATION
  Report Type: 
  Country: None (occurrence: None)
  Receive Date: 20090612
  Receipt Date: 20090416
  Transmission Date: 20091009
  Serious: No
  Sender: FDA-Public Use
  Company Number: US-ABBOTT-09P-163-0568720-00

PATIENT
  Sex: Male
  Weight: 90.8 kg

DRUGS (13)
  1. HUMIRA [Suspect]
     Indication: RHEUMATOID ARTHRITIS
     Route: 058
     Dates: start: 20040101
  2. HUMIRA [Suspect]
     Indication: OSTEOARTHRITIS
  3. CELEBREX [Concomitant]
     Indication: RHEUMATOID ARTHRITIS
     Dates: start: 20040101
  4. CELEBREX [Concomitant]
     Indication: OSTEOARTHRITIS
  5. FLORDIPINE [Concomitant]
     Indication: BLOOD PRESSURE
  6. FOSAMAX [Concomitant]
     Indication: DRUG USE FOR UNKNOWN INDICATION
  7. CLARITIN [Concomitant]
     Indication: DRUG USE FOR UNKNOWN INDICATION
  8. NASONEX [Concomitant]
     Indication: DRUG USE FOR UNKNOWN INDICATION
  9. ALBUTEROL [Concomitant]
     Indication: DRUG USE FOR UNKNOWN INDICATION
  10. OMEPRAZOLE [Concomitant]
     Indication: DRUG USE FOR UNKNOWN INDICATION
  11. FISH OIL [Concomitant]
     Indication: DRUG USE FOR UNKNOWN INDICATION
  12. CALCIUM [Concomitant]
     Indication: DRUG USE FOR UNKNOWN INDICATION
  13. M.V.I. [Concomitant]
     Indication: DRUG USE FOR UNKNOWN INDICATION

REACTIONS (2)
  - COUGH [None]
  - NASOPHARYNGITIS [None]
